FAERS Safety Report 4706822-1 (Version None)
Quarter: 2005Q3

REPORT INFORMATION
  Report Type: 
  Country: None (occurrence: None)
  Receive Date: 20050705
  Receipt Date: 20050620
  Transmission Date: 20060218
  Serious: Yes (Other)
  Sender: FDA-Public Use
  Company Number: 2005015581

PATIENT
  Age: 75 Year
  Sex: Male
  Weight: 58.9676 kg

DRUGS (2)
  1. DETROL LA [Suspect]
     Indication: INCONTINENCE
     Dosage: 4 MG (4 MG, 1 IN 1 D), ORAL
     Route: 048
     Dates: start: 20041001
  2. DETROL LA [Suspect]
     Indication: URINARY INCONTINENCE
     Dosage: 4 MG (4 MG, 1 IN 1 D), ORAL
     Route: 048
     Dates: start: 20041001

REACTIONS (4)
  - CONDITION AGGRAVATED [None]
  - DRUG INEFFECTIVE [None]
  - DRY MOUTH [None]
  - URINARY INCONTINENCE [None]
